FAERS Safety Report 4266163-6 (Version None)
Quarter: 2004Q1

REPORT INFORMATION
  Report Type: 
  Country: None (occurrence: None)
  Receive Date: 20040106
  Receipt Date: 20031016
  Transmission Date: 20041129
  Serious: Yes (Hospitalization, Other)
  Sender: FDA-Public Use
  Company Number: KII-2003-0006601

PATIENT
  Age: 63 Year
  Sex: Female

DRUGS (8)
  1. OXYCODONE HCL [Suspect]
  2. FENTANYL [Suspect]
  3. AMITRIPTYLINE HCL [Suspect]
  4. SSRI ( ) [Suspect]
  5. BACLOFEN [Suspect]
  6. GABAPENTIN [Suspect]
  7. TRAMADOL HCL [Suspect]
  8. TOLTERODINE (TOLTERODINE) [Suspect]

REACTIONS (7)
  - DISORIENTATION [None]
  - DRUG INTERACTION [None]
  - MENTAL STATUS CHANGES [None]
  - PAIN [None]
  - RESPIRATORY RATE DECREASED [None]
  - SINUS TACHYCARDIA [None]
  - SOMNOLENCE [None]
